FAERS Safety Report 5895390-7 (Version None)
Quarter: 2008Q3

REPORT INFORMATION
  Report Type: 
  Country: None (occurrence: None)
  Receive Date: 20080924
  Receipt Date: 20080911
  Transmission Date: 20090109
  Serious: Yes (Hospitalization)
  Sender: FDA-Public Use
  Company Number: DE-JNJFOC-20080903237

PATIENT
  Age: 61 Year
  Sex: Male

DRUGS (1)
  1. REMICADE [Suspect]
     Indication: COLITIS ULCERATIVE
     Route: 042

REACTIONS (6)
  - CLOSTRIDIAL INFECTION [None]
  - COLITIS ULCERATIVE [None]
  - CYTOMEGALOVIRUS INFECTION [None]
  - HEPARIN-INDUCED THROMBOCYTOPENIA [None]
  - HERPES VIRUS INFECTION [None]
  - MYOCARDIAL ISCHAEMIA [None]
